FAERS Safety Report 23835706 (Version 1)
Quarter: 2024Q2

REPORT INFORMATION
  Report Type: Spontaneous
  Country: US (occurrence: US)
  Receive Date: 20240509
  Receipt Date: 20240509
  Transmission Date: 20240717
  Serious: Yes (Hospitalization)
  Sender: FDA-Public Use
  Company Number: US-GSK-US2024056218

PATIENT

DRUGS (1)
  1. TRELEGY ELLIPTA [Suspect]
     Active Substance: FLUTICASONE FUROATE\UMECLIDINIUM BROMIDE\VILANTEROL TRIFENATATE
     Indication: Chronic obstructive pulmonary disease
     Dosage: 1 PUFF(S), 100MCG/62.5MCG/25MCG , QAM

REACTIONS (2)
  - Dyspnoea [Recovering/Resolving]
  - Parainfluenzae virus infection [Recovering/Resolving]

NARRATIVE: CASE EVENT DATE: 20240428
